FAERS Safety Report 7527876-3 (Version None)
Quarter: 2011Q2

REPORT INFORMATION
  Report Type: 
  Country: None (occurrence: None)
  Receive Date: 20110607
  Receipt Date: 20110530
  Transmission Date: 20111010
  Serious: Yes (Other)
  Sender: FDA-Public Use
  Company Number: JP-ASTELLAS-2011JP003629

PATIENT
  Age: 73 Year
  Sex: Female
  Weight: 39.7 kg

DRUGS (5)
  1. SULFAMETHOXAZOLE [Concomitant]
     Route: 048
  2. PREDNISOLONE [Concomitant]
     Route: 065
  3. PREDNISOLONE [Concomitant]
     Indication: SYSTEMIC LUPUS ERYTHEMATOSUS
     Dosage: 1 MG/KG, UNKNOWN/D
     Route: 065
  4. PROGRAF [Suspect]
     Indication: SYSTEMIC LUPUS ERYTHEMATOSUS
     Dosage: UNK
     Route: 065
  5. METHYLPREDNISOLONE [Concomitant]
     Indication: SYSTEMIC LUPUS ERYTHEMATOSUS
     Dosage: 1000 MG, UNKNOWN/D
     Route: 065

REACTIONS (4)
  - OFF LABEL USE [None]
  - BRONCHOPULMONARY ASPERGILLOSIS [None]
  - STOMATITIS [None]
  - DISSEMINATED TUBERCULOSIS [None]
